FAERS Safety Report 23919600 (Version 2)
Quarter: 2024Q4

REPORT INFORMATION
  Report Type: Report from Study
  Country: PK (occurrence: PK)
  Receive Date: 20240530
  Receipt Date: 20241125
  Transmission Date: 20250115
  Serious: Yes (Death, Other)
  Sender: ROCHE
  Company Number: PK-ROCHE-3571357

PATIENT
  Age: 49 Year
  Sex: Male

DRUGS (1)
  1. RITUXIMAB [Suspect]
     Active Substance: RITUXIMAB
     Indication: Follicular lymphoma
     Route: 042
     Dates: start: 20240508

REACTIONS (2)
  - Lymphoma transformation [Unknown]
  - Ill-defined disorder [Fatal]

NARRATIVE: CASE EVENT DATE: 20240520
